FAERS Safety Report 8013899-7 (Version None)
Quarter: 2011Q4

REPORT INFORMATION
  Report Type: 
  Country: None (occurrence: None)
  Receive Date: 20111229
  Receipt Date: 20111216
  Transmission Date: 20120403
  Serious: Yes (Death)
  Sender: FDA-Public Use
  Company Number: US-ROCHE-1023095

PATIENT
  Age: 43 Year
  Sex: Female
  Weight: 82.6 kg

DRUGS (8)
  1. AVASTIN [Suspect]
     Route: 042
     Dates: start: 20111111
  2. CARBOPLATIN [Suspect]
     Dates: start: 20111111
  3. AVASTIN [Suspect]
     Indication: FALLOPIAN TUBE CANCER
     Route: 042
     Dates: start: 20110902
  4. PACLITAXEL [Suspect]
     Indication: FALLOPIAN TUBE CANCER
     Dosage: CYCLE 4 DELAYED 1 WEEK AND TAXOL WAS DOSE REDUCED TO 70 MG/M2 ON
     Dates: start: 20110902
  5. CLONAZEPAM [Suspect]
     Indication: PRODUCT USED FOR UNKNOWN INDICATION
  6. CARBOPLATIN [Suspect]
     Indication: FALLOPIAN TUBE CANCER
     Dosage: 6 AUC
     Route: 042
     Dates: start: 20110902
  7. MIRTAZAPINE [Suspect]
     Indication: PRODUCT USED FOR UNKNOWN INDICATION
  8. PACLITAXEL [Suspect]
     Dosage: CYCLE 4 DELAYED 1 WEEK AND TAXOL WAS DOSE REDUCED TO 70 MG/M2 ON
     Dates: start: 20111128

REACTIONS (1)
  - DEATH [None]
